FAERS Safety Report 18469497 (Version 2)
Quarter: 2020Q4

REPORT INFORMATION
  Report Type: Report from Study
  Country: US (occurrence: US)
  Receive Date: 20201105
  Receipt Date: 20201113
  Transmission Date: 20210114
  Serious: Yes (Death, Hospitalization, Other)
  Sender: FDA-Public Use
  Company Number: US-SHIRE-US202027037

PATIENT
  Age: 70 Year
  Sex: Female

DRUGS (2)
  1. 643 (LANADELUMAB) [Suspect]
     Active Substance: LANADELUMAB
     Dosage: UNK
     Route: 058
     Dates: start: 20180918, end: 20201028
  2. 643 (LANADELUMAB) [Suspect]
     Active Substance: LANADELUMAB
     Indication: PRODUCT USED FOR UNKNOWN INDICATION
     Dosage: 300 MILLIGRAM, PRN
     Route: 058
     Dates: start: 20180101

REACTIONS (4)
  - COVID-19 [Fatal]
  - Transient ischaemic attack [Unknown]
  - Blister [Unknown]
  - Lymphoma [Unknown]

NARRATIVE: CASE EVENT DATE: 20200819
